FAERS Safety Report 6045918-1 (Version None)
Quarter: 2009Q1

REPORT INFORMATION
  Report Type: 
  Country: None (occurrence: None)
  Receive Date: 20090116
  Receipt Date: 20090108
  Transmission Date: 20090719
  Serious: Yes (Other)
  Sender: FDA-Public Use
  Company Number: GXKR2009CH00570

PATIENT
  Age: 87 Year
  Sex: Female
  Weight: 44.3 kg

DRUGS (10)
  1. TORSEMIDE [Suspect]
     Dosage: 10 MG, QD (1 PER DAY), ORAL
     Route: 048
     Dates: start: 20070101, end: 20081021
  2. ENALAPRIL MALEATE [Suspect]
     Dosage: 10 MG, ORAL
     Route: 048
     Dates: start: 20070101, end: 20081021
  3. ZOLPIDEM [Suspect]
     Dosage: 5 MG (1 AS NECESSARY), ORAL
     Route: 048
     Dates: start: 20081013
  4. CITALOPRAM HYDROBROMIDE [Suspect]
     Dosage: 20 MG, QD (1 PER DAY), ORAL
     Route: 048
     Dates: start: 20070101, end: 20081024
  5. NEXIUM [Suspect]
     Dosage: 1 DF, QD, ORAL
     Route: 048
     Dates: start: 20080926, end: 20081020
  6. ASPIRIN [Suspect]
     Dosage: 1 DF, QD, ORAL
     Route: 048
     Dates: start: 20070101
  7. BELOC ZOK (METOPROLOL SUCCINATE) EXTENDED RELEASE TABLET, 100MG [Suspect]
     Dosage: 100 MG, ORAL
     Route: 048
     Dates: start: 20080101
  8. ERYTHROPOIETIN HUMAN (ERYTHROPOIETIN HUMAN) VIAL, 5000 IU [Concomitant]
  9. EUTHYROX (LEVOTHYROXINE SODIUM) TABLET, 0.1 MG [Concomitant]
  10. SPERSACARPINE (PILOCARPINE HYDROCHLORIDE) , 2 % [Concomitant]

REACTIONS (9)
  - ALANINE AMINOTRANSFERASE INCREASED [None]
  - ASPARTATE AMINOTRANSFERASE INCREASED [None]
  - BLOOD ALBUMIN DECREASED [None]
  - BLOOD ALKALINE PHOSPHATASE INCREASED [None]
  - GAMMA-GLUTAMYLTRANSFERASE INCREASED [None]
  - HEPATOCELLULAR INJURY [None]
  - HYPERBILIRUBINAEMIA [None]
  - PROTHROMBIN TIME PROLONGED [None]
  - WEIGHT DECREASED [None]
